FAERS Safety Report 18695144 (Version 1)
Quarter: 2020Q4

REPORT INFORMATION
  Report Type: Spontaneous
  Country: US (occurrence: US)
  Receive Date: 20201231
  Receipt Date: 20201231
  Transmission Date: 20210114
  Serious: Yes (Hospitalization)
  Sender: FDA-Public Use
  Company Number: None

PATIENT
  Age: 56 Year
  Sex: Male
  Weight: 65.6 kg

DRUGS (1)
  1. YESCARTA [Suspect]
     Active Substance: AXICABTAGENE CILOLEUCEL

REACTIONS (10)
  - Headache [None]
  - Fatigue [None]
  - Memory impairment [None]
  - Disorientation [None]
  - Pyrexia [None]
  - Myalgia [None]
  - Neurotoxicity [None]
  - Somnolence [None]
  - Lethargy [None]
  - Malaise [None]
